FAERS Safety Report 6038061-9 (Version None)
Quarter: 2009Q1

REPORT INFORMATION
  Report Type: 
  Country: None (occurrence: None)
  Receive Date: 20090112
  Receipt Date: 20090112
  Transmission Date: 20090719
  Serious: No
  Sender: FDA-Public Use
  Company Number: None

PATIENT
  Sex: Female
  Weight: 64.4108 kg

DRUGS (1)
  1. NEOCON [Suspect]
     Indication: CONTRACEPTION
     Dosage: ONCE DAILY ORAL
     Route: 048
     Dates: start: 20081201

REACTIONS (4)
  - ACCIDENTAL EXPOSURE [None]
  - BACK PAIN [None]
  - HAEMORRHAGE [None]
  - MUSCLE SPASMS [None]
